FAERS Safety Report 8173336-9 (Version None)
Quarter: 2012Q1

REPORT INFORMATION
  Report Type: 
  Country: None (occurrence: None)
  Receive Date: 20120104
  Receipt Date: 20120104
  Transmission Date: 20120608
  Serious: No
  Sender: FDA-Public Use
  Company Number: 2011HGS-002690

PATIENT
  Age: 48 Year
  Sex: Female
  Weight: 88.4514 kg

DRUGS (15)
  1. SACCHARATE, AMPHETAMINE ASPARTATE) [Concomitant]
  2. XYREM (OXYBATE SODIUM) (OXYBATE SODIUM) [Concomitant]
  3. CALCIUM (CALCIUM) (CALCIUM) [Concomitant]
  4. MAGNESIUM (MAGNESIUM) (MAGNESIUM) [Concomitant]
  5. MYFORTIC (MYCOPHENOLATE SODIUM) (MYCOPHENOLATE SODIUM) [Concomitant]
  6. TRILEPTAL (OXCARBAZEPINE) (OXCARBAZEPINE) [Concomitant]
  7. ADDERALL XR (OBETROL) (DEXAMFETAMINE SULFATE, AMPHETAMINE SULFATE, DEX [Concomitant]
  8. PLAQUENIL (HYDROCXYCHLOROQUINE SULFATE) (HYDROXYCHLOROQUINE SULFATE) [Concomitant]
  9. MIRENA (LEVONORGESTREL) (LEVONORGESTREL) [Concomitant]
  10. ABILIFY (ARIPIPRAZOLE) (ARIPIPRAZOLE) [Concomitant]
  11. FLUOXETINE [Concomitant]
  12. BENLYSTA [Suspect]
     Indication: SYSTEMIC LUPUS ERYTHEMATOSUS
     Dosage: 1 IN 14 D, INTRAVENOUS DRIP
     Route: 041
     Dates: start: 20110906
  13. PREDNISONE [Concomitant]
  14. VIVELLE PATCH (ESTROGEN NOS) (ESTROGEN NOS) [Concomitant]
  15. LOVOXYL (LEVOTHYROXINE) (LEVOTHYROXINE) [Concomitant]

REACTIONS (1)
  - FATIGUE [None]
